FAERS Safety Report 9029049 (Version 1)
Quarter: 2013Q1

REPORT INFORMATION
  Report Type: Spontaneous
  Country: HK (occurrence: HK)
  Receive Date: 20130122
  Receipt Date: 20130122
  Transmission Date: 20140127
  Serious: Yes (Hospitalization, Other)
  Sender: FDA-Public Use
  Company Number: HK-ROCHE-1179036

PATIENT
  Age: 42 Year
  Sex: Female
  Weight: 51.1 kg

DRUGS (2)
  1. CAPECITABINE [Suspect]
     Indication: COLON CANCER
     Dosage: FOR 14 DAYS FOLLOWED BY A 1-WEEK DRUG HOLIDAY
     Route: 048
     Dates: start: 200910
  2. CAPECITABINE [Suspect]
     Dosage: FOR 14 DAYS FOLLOWED BY A 1-WEEK DRUG HOLIDAY
     Route: 048

REACTIONS (3)
  - Pancreatitis necrotising [Recovered/Resolved]
  - Hypertriglyceridaemia [Recovered/Resolved]
  - Palmar-plantar erythrodysaesthesia syndrome [Unknown]
